FAERS Safety Report 10072219 (Version 1)
Quarter: 2014Q2

REPORT INFORMATION
  Report Type: Spontaneous
  Country: US (occurrence: None)
  Receive Date: 20140410
  Receipt Date: 20140410
  Transmission Date: 20141212
  Serious: Yes (Hospitalization)
  Sender: FDA-Public Use
  Company Number: None

PATIENT
  Age: 50 Year
  Sex: Female
  Weight: 47 kg

DRUGS (10)
  1. LASIX [Suspect]
     Indication: FLUID RETENTION
     Route: 030
     Dates: start: 20140408, end: 20140409
  2. DILNIP (CLINIDIPINE) 5 MG [Concomitant]
  3. PANTOP (PANTOPRAZOLE) 40 MG [Concomitant]
  4. ACTRAPID [Concomitant]
  5. METRONIDAZOLE [Concomitant]
  6. DOLO (PARACETAMOL) [Concomitant]
  7. AUGMENTIN [Concomitant]
  8. SHELCAL 500MG [Concomitant]
  9. ATORVA (ATORVASTATIN) 10MG [Concomitant]
  10. ZYTANIX (METOLAZONE) 5 MG [Concomitant]

REACTIONS (1)
  - Deafness [None]
